FAERS Safety Report 10883085 (Version 6)
Quarter: 2015Q4

REPORT INFORMATION
  Report Type: Spontaneous
  Country: CA (occurrence: CA)
  Receive Date: 20150303
  Receipt Date: 20151215
  Transmission Date: 20160304
  Serious: Yes (Hospitalization, Other)
  Sender: FDA-Public Use
  Company Number: CA-GLAXOSMITHKLINE-CA2014GSK036948

PATIENT
  Age: 84 Year
  Sex: Male

DRUGS (13)
  1. ADVAIR HFA [Suspect]
     Active Substance: FLUTICASONE PROPIONATE\SALMETEROL XINAFOATE
     Indication: ASTHMA
     Dosage: 1 PUFF(S), BID
     Route: 055
     Dates: start: 2014
  2. GABAPENTIN. [Concomitant]
     Active Substance: GABAPENTIN
     Indication: MYALGIA
     Dosage: UNK
  3. ASPIRIN (BABY) [Concomitant]
     Active Substance: ASPIRIN
     Indication: ANTICOAGULANT THERAPY
     Dosage: 81 MG, 1D
     Route: 048
  4. BISOPROLOL FUMARATE. [Concomitant]
     Active Substance: BISOPROLOL FUMARATE
     Indication: PRODUCT USED FOR UNKNOWN INDICATION
     Dosage: UNK
  5. AMIODARONE [Suspect]
     Active Substance: AMIODARONE
     Indication: BLOOD PRESSURE MEASUREMENT
     Dosage: UNK
     Route: 042
  6. SALBUTAMOL [Concomitant]
     Active Substance: ALBUTEROL
     Indication: PRODUCT USED FOR UNKNOWN INDICATION
     Dosage: UNK
  7. ROSUVASTATIN [Concomitant]
     Active Substance: ROSUVASTATIN
     Indication: BLOOD CHOLESTEROL
     Dosage: UNK
  8. VITAMIN B12 [Concomitant]
     Active Substance: CYANOCOBALAMIN
     Indication: PRODUCT USED FOR UNKNOWN INDICATION
     Dosage: UNK
  9. OLOPATADINE [Concomitant]
     Active Substance: OLOPATADINE
     Indication: PRODUCT USED FOR UNKNOWN INDICATION
     Dosage: UNK
  10. TECTA [Concomitant]
     Active Substance: PANTOPRAZOLE MAGNESIUM
     Indication: HYPERCHLORHYDRIA
     Dosage: UNK
  11. ADVAIR HFA [Suspect]
     Active Substance: FLUTICASONE PROPIONATE\SALMETEROL XINAFOATE
     Indication: CHRONIC OBSTRUCTIVE PULMONARY DISEASE
  12. NOVO-AMIODARONE [Concomitant]
     Indication: BLOOD PRESSURE MEASUREMENT
     Dosage: 400 MG, 1D
     Route: 048
  13. MYLAN-BUDESONIDE [Concomitant]
     Indication: PRODUCT USED FOR UNKNOWN INDICATION
     Dosage: UNK, BID
     Route: 045
     Dates: start: 20150604

REACTIONS (23)
  - Angina pectoris [Unknown]
  - Lung infection [Unknown]
  - Cough [Unknown]
  - Adverse event [Unknown]
  - Heart valve calcification [Unknown]
  - Medication error [Unknown]
  - Off label use [Not Recovered/Not Resolved]
  - Abdominal pain [Unknown]
  - Chronic obstructive pulmonary disease [Unknown]
  - Rhinorrhoea [Not Recovered/Not Resolved]
  - Cardiac valve disease [Unknown]
  - Dyspnoea [Unknown]
  - Coronary artery bypass [Unknown]
  - Lung abscess [Unknown]
  - Nasopharyngitis [Not Recovered/Not Resolved]
  - Erythema [Unknown]
  - Factitious disorder [Not Recovered/Not Resolved]
  - Aortic valve replacement [Unknown]
  - Pain [Unknown]
  - Sneezing [Not Recovered/Not Resolved]
  - Productive cough [Not Recovered/Not Resolved]
  - Procedural pain [Unknown]
  - Product quality issue [Unknown]

NARRATIVE: CASE EVENT DATE: 20141229
